FAERS Safety Report 17160628 (Version 2)
Quarter: 2019Q4

REPORT INFORMATION
  Report Type: Spontaneous
  Country: US (occurrence: US)
  Receive Date: 20191216
  Receipt Date: 20191227
  Transmission Date: 20200122
  Serious: Yes (Hospitalization, Other)
  Sender: FDA-Public Use
  Company Number: US-ENDO PHARMACEUTICALS INC-2019-109045

PATIENT
  Age: 62 Year
  Sex: Male
  Weight: 83.9 kg

DRUGS (3)
  1. XIAFLEX [Suspect]
     Active Substance: COLLAGENASE CLOSTRIDIUM HISTOLYTICUM
     Dosage: UNK UNKNOWN, UNKNOWN; CYCLE ONE, INJECTION ONE
     Route: 026
     Dates: start: 20191003
  2. FLOMAX [Concomitant]
     Active Substance: TAMSULOSIN HYDROCHLORIDE
     Indication: DYSURIA
     Dosage: UNK UNKNOWN, UNKNOWN
     Route: 065
  3. XIAFLEX [Suspect]
     Active Substance: COLLAGENASE CLOSTRIDIUM HISTOLYTICUM
     Indication: PEYRONIE^S DISEASE
     Dosage: UNK UNKNOWN, UNKNOWN; CYCLE ONE, INJECTION ONE
     Route: 026
     Dates: start: 20190930

REACTIONS (13)
  - Dysuria [Not Recovered/Not Resolved]
  - Urinary retention [Unknown]
  - Genital discomfort [Recovering/Resolving]
  - Swelling [Recovering/Resolving]
  - Bacteraemia [Unknown]
  - Contusion [Recovering/Resolving]
  - Penile contusion [Recovering/Resolving]
  - Penile swelling [Recovering/Resolving]
  - Genital pain [Recovering/Resolving]
  - Pelvic pain [Recovering/Resolving]
  - Penile pain [Recovering/Resolving]
  - Influenza like illness [Recovered/Resolved]
  - Prostatitis [Unknown]

NARRATIVE: CASE EVENT DATE: 201910
